FAERS Safety Report 9879903 (Version 1)
Quarter: 2014Q1

REPORT INFORMATION
  Report Type: Report from Study
  Country: CA (occurrence: CA)
  Receive Date: 20140206
  Receipt Date: 20140206
  Transmission Date: 20141002
  Serious: Yes (Other)
  Sender: FDA-Public Use
  Company Number: CA-ROCHE-1345191

PATIENT
  Sex: Male

DRUGS (4)
  1. AVASTIN [Suspect]
     Indication: GLIOBLASTOMA
     Route: 042
     Dates: start: 20131024
  2. METFORMIN HYDROCHLORIDE [Concomitant]
     Route: 065
  3. DEXAMETHASONE [Concomitant]
  4. PAROXETINE [Concomitant]

REACTIONS (1)
  - General physical health deterioration [Unknown]
